FAERS Safety Report 5641315-9 (Version None)
Quarter: 2008Q1

REPORT INFORMATION
  Report Type: 
  Country: None (occurrence: None)
  Receive Date: 20080227
  Receipt Date: 20070518
  Transmission Date: 20080703
  Serious: No
  Sender: FDA-Public Use
  Company Number: A0651709A

PATIENT
  Age: 76 Year
  Sex: Female

DRUGS (1)
  1. COMMIT [Suspect]
     Dates: start: 20070514, end: 20070516

REACTIONS (1)
  - HICCUPS [None]
